FAERS Safety Report 4317388-2 (Version None)
Quarter: 2004Q1

REPORT INFORMATION
  Report Type: 
  Country: None (occurrence: None)
  Receive Date: 20040312
  Receipt Date: 20040308
  Transmission Date: 20041129
  Serious: Yes (Death, Hospitalization)
  Sender: FDA-Public Use
  Company Number: 2001080397FR

PATIENT
  Age: 69 Year
  Sex: Male

DRUGS (11)
  1. CAMPTOSAR [Suspect]
     Indication: HEPATIC NEOPLASM MALIGNANT
     Dosage: 599 MG, CYCLIC, IV
     Route: 042
     Dates: start: 20011022, end: 20011022
  2. MEDROL [Concomitant]
  3. CETORNAN (ORNITHINE OXOGLURATE) [Concomitant]
  4. DIFFU K [Concomitant]
  5. MOPRAL [Concomitant]
  6. DAFALGAN CODEINE [Concomitant]
  7. HEXAQUINE (NIAOULI OIL) [Concomitant]
  8. KYTRIL [Concomitant]
  9. SOLU-MEDROL [Concomitant]
  10. ATROPINE [Concomitant]
  11. IMODIUM [Concomitant]

REACTIONS (9)
  - ANOREXIA [None]
  - ATRIAL FIBRILLATION [None]
  - CONFUSIONAL STATE [None]
  - DEHYDRATION [None]
  - DIARRHOEA [None]
  - ESCHERICHIA SEPSIS [None]
  - LEUKOPENIA [None]
  - RENAL FAILURE [None]
  - SEPTIC SHOCK [None]
